FAERS Safety Report 9549822 (Version 4)
Quarter: 2014Q2

REPORT INFORMATION
  Report Type: Spontaneous
  Country: US (occurrence: US)
  Receive Date: 20130924
  Receipt Date: 20140410
  Transmission Date: 20141212
  Serious: Yes (Other)
  Sender: FDA-Public Use
  Company Number: US-009507513-1309USA010302

PATIENT
  Sex: Male
  Weight: 86.17 kg

DRUGS (1)
  1. PROPECIA [Suspect]
     Indication: ANDROGENETIC ALOPECIA
     Dosage: 1 MG, QD
     Route: 048
     Dates: start: 20110509, end: 20121112

REACTIONS (8)
  - Penile repair [Recovering/Resolving]
  - Peyronie^s disease [Recovering/Resolving]
  - Erectile dysfunction [Not Recovered/Not Resolved]
  - Sexual dysfunction [Not Recovered/Not Resolved]
  - Nephrolithiasis [Unknown]
  - Dyspareunia [Unknown]
  - Dyslipidaemia [Unknown]
  - Circumcision [Recovering/Resolving]
